FAERS Safety Report 6785655-9 (Version None)
Quarter: 2010Q2

REPORT INFORMATION
  Report Type: 
  Country: None (occurrence: None)
  Receive Date: 20100621
  Receipt Date: 20100621
  Transmission Date: 20101027
  Serious: Yes (Other)
  Sender: FDA-Public Use
  Company Number: None

PATIENT
  Age: 38 Year
  Sex: Female
  Weight: 74.8435 kg

DRUGS (1)
  1. TYLENOL GEL CAPS 100 CT 500MG TYLENOL [Suspect]
     Indication: HEADACHE
     Dosage: 1
     Dates: start: 20100612, end: 20100618

REACTIONS (2)
  - ADVERSE DRUG REACTION [None]
  - PRODUCT QUALITY ISSUE [None]
